FAERS Safety Report 23973827 (Version 4)
Quarter: 2025Q3

REPORT INFORMATION
  Report Type: Report from Study
  Country: US (occurrence: US)
  Receive Date: 20240613
  Receipt Date: 20250710
  Transmission Date: 20251020
  Serious: Yes (Other)
  Sender: TAKEDA
  Company Number: US-TAKEDA-2024TUS058707

PATIENT
  Sex: Male

DRUGS (17)
  1. PONATINIB [Suspect]
     Active Substance: PONATINIB
     Indication: Acute lymphocytic leukaemia
     Dosage: 15 MILLIGRAM, BID
  2. PONATINIB [Suspect]
     Active Substance: PONATINIB
     Dosage: 15 MILLIGRAM, QD
  3. PONATINIB [Suspect]
     Active Substance: PONATINIB
     Dosage: 15 MILLIGRAM, QD
  4. METOPROLOL TARTRATE [Concomitant]
     Active Substance: METOPROLOL TARTRATE
  5. COLACE [Concomitant]
     Active Substance: DOCUSATE SODIUM
  6. FLONASE [Concomitant]
     Active Substance: FLUTICASONE PROPIONATE
  7. MIRTAZAPINE [Concomitant]
     Active Substance: MIRTAZAPINE
  8. FLUCONAZOLE [Concomitant]
     Active Substance: FLUCONAZOLE
  9. ACYCLOVIR [Concomitant]
     Active Substance: ACYCLOVIR
  10. LEVOFLOXACIN [Concomitant]
     Active Substance: LEVOFLOXACIN
  11. LEVOTHYROXINE SODIUM [Concomitant]
     Active Substance: LEVOTHYROXINE SODIUM
  12. ATOVAQUONE [Concomitant]
     Active Substance: ATOVAQUONE
  13. CLARITIN [Concomitant]
     Active Substance: LORATADINE
  14. MEGESTROL ACETATE [Concomitant]
     Active Substance: MEGESTROL ACETATE
  15. PRAVASTATIN SODIUM [Concomitant]
     Active Substance: PRAVASTATIN SODIUM
  16. TAMSULOSIN HYDROCHLORIDE [Concomitant]
     Active Substance: TAMSULOSIN HYDROCHLORIDE
  17. ASPIRIN [Concomitant]
     Active Substance: ASPIRIN

REACTIONS (8)
  - Intestinal metastasis [Unknown]
  - Product use issue [Unknown]
  - Product dose omission issue [Unknown]
  - Flatulence [Unknown]
  - Off label use [Unknown]
  - Rash [Unknown]
  - Abdominal pain [Unknown]
  - Abdominal pain upper [Unknown]
